FAERS Safety Report 11289117 (Version 1)
Quarter: 2015Q3

REPORT INFORMATION
  Report Type: Report from Study
  Country: CZ (occurrence: CZ)
  Receive Date: 20150721
  Receipt Date: 20150721
  Transmission Date: 20151125
  Serious: Yes (Hospitalization)
  Sender: FDA-Public Use
  Company Number: CZ-UCBSA-2015019841

PATIENT
  Age: 44 Year
  Sex: Male

DRUGS (1)
  1. CERTOLIZUMAB PEGOL [Suspect]
     Active Substance: CERTOLIZUMAB PEGOL
     Indication: ANKYLOSING SPONDYLITIS
     Dosage: 200 MG, EV 2 WEEKS(QOW)
     Dates: start: 20140925, end: 2015

REACTIONS (2)
  - Dermatitis psoriasiform [Not Recovered/Not Resolved]
  - Parapsoriasis [Recovering/Resolving]

NARRATIVE: CASE EVENT DATE: 2014
